FAERS Safety Report 8136258-5 (Version None)
Quarter: 2012Q1

REPORT INFORMATION
  Report Type: 
  Country: None (occurrence: None)
  Receive Date: 20120214
  Receipt Date: 20120209
  Transmission Date: 20120608
  Serious: Yes (Hospitalization)
  Sender: FDA-Public Use
  Company Number: DE-ABBOTT-11P-062-0870636-00

PATIENT
  Sex: Female
  Weight: 59 kg

DRUGS (6)
  1. HUMIRA [Suspect]
     Dates: start: 20111117, end: 20120118
  2. HUMIRA [Suspect]
     Indication: RHEUMATOID ARTHRITIS
     Route: 058
     Dates: start: 20110415, end: 20110904
  3. ERGOCALCIFEROL [Concomitant]
     Indication: OSTEOPOROSIS
     Dosage: 1000 IU (INTERNATIONAL UNIT)
     Route: 048
     Dates: start: 20110804
  4. NOVALGIN [Concomitant]
     Indication: PRODUCT USED FOR UNKNOWN INDICATION
  5. CELEBREX [Concomitant]
     Indication: RHEUMATOID ARTHRITIS
     Route: 048
     Dates: start: 20110926
  6. ALENDRONIC ACID [Concomitant]
     Indication: OSTEOPOROSIS
     Dosage: 70 MILLIGRAM- ONCE PER WEEK
     Route: 048
     Dates: start: 20110804

REACTIONS (3)
  - CYST [None]
  - SYNOVIAL CYST [None]
  - MENISCUS REMOVAL [None]
